FAERS Safety Report 18215995 (Version 1)
Quarter: 2020Q3

REPORT INFORMATION
  Report Type: Spontaneous
  Country: GB (occurrence: GB)
  Receive Date: 20200901
  Receipt Date: 20200901
  Transmission Date: 20201103
  Serious: Yes (Other)
  Sender: FDA-Public Use
  Company Number: GB-SUN PHARMACEUTICAL INDUSTRIES LTD-2020R1-259119

PATIENT
  Sex: Female

DRUGS (14)
  1. NITROGLYCERIN. [Suspect]
     Active Substance: NITROGLYCERIN
     Indication: UTERINE ATONY
     Dosage: UNK
     Route: 065
  2. PROPOFOL. [Suspect]
     Active Substance: PROPOFOL
     Dosage: 2?3 MG/KG/H
     Route: 042
  3. METOCLOPRAMIDE. [Suspect]
     Active Substance: METOCLOPRAMIDE
     Indication: PRODUCT USED FOR UNKNOWN INDICATION
     Dosage: 10 MILLIGRAM
     Route: 042
  4. PROPOFOL. [Suspect]
     Active Substance: PROPOFOL
     Indication: ANAESTHESIA
     Dosage: 1.5 MILLIGRAM/KILOGRAM
     Route: 042
  5. REMIFENTANIL [Suspect]
     Active Substance: REMIFENTANIL
     Indication: ANAESTHESIA
     Dosage: 10 MICROGRAM/KILOGRAM/HOUR
     Route: 065
  6. CEFUROXIME. [Suspect]
     Active Substance: CEFUROXIME
     Indication: ANTIBIOTIC PROPHYLAXIS
     Dosage: 1.5 GRAM
     Route: 065
  7. FENTANYL. [Suspect]
     Active Substance: FENTANYL
     Indication: PRODUCT USED FOR UNKNOWN INDICATION
     Dosage: 3 MICROGRAM/KILOGRAM
     Route: 042
  8. MORPHINE [Suspect]
     Active Substance: MORPHINE
     Indication: PAIN
     Dosage: 0.15 MILLIGRAM/KILOGRAM
     Route: 048
  9. MORPHINE [Suspect]
     Active Substance: MORPHINE
     Indication: PRODUCT USED FOR UNKNOWN INDICATION
     Dosage: UNK
     Route: 042
  10. INDOMETHACIN. [Suspect]
     Active Substance: INDOMETHACIN
     Indication: TOCOLYSIS
     Dosage: 100 MILLIGRAM(12 H PRE?OPERATIVELY)
     Route: 054
  11. PARACETAMOL [Suspect]
     Active Substance: ACETAMINOPHEN
     Indication: PAIN
     Dosage: 1 GRAM
     Route: 042
  12. PHENYLEPHRINE [Suspect]
     Active Substance: PHENYLEPHRINE HYDROCHLORIDE
     Indication: BLOOD PRESSURE MANAGEMENT
     Dosage: UNK
     Route: 065
  13. ROCURONIUM [Suspect]
     Active Substance: ROCURONIUM BROMIDE
     Indication: PRODUCT USED FOR UNKNOWN INDICATION
     Dosage: 0.8 MILLIGRAM/KILOGRAM
     Route: 065
  14. SEVOFLURANE. [Suspect]
     Active Substance: SEVOFLURANE
     Indication: ANAESTHESIA
     Dosage: MINIMUM ALVEOLAR CONCENTRATION (MAC) OF 0.4?1

REACTIONS (2)
  - Exposure during pregnancy [Unknown]
  - Premature delivery [Unknown]
